FAERS Safety Report 8200653-6 (Version None)
Quarter: 2012Q1

REPORT INFORMATION
  Report Type: 
  Country: None (occurrence: None)
  Receive Date: 20120222
  Receipt Date: 20120215
  Transmission Date: 20120608
  Serious: Yes (Hospitalization)
  Sender: FDA-Public Use
  Company Number: 2012030784

PATIENT
  Age: 61 Year
  Sex: Female
  Weight: 43.0917 kg

DRUGS (18)
  1. CITALOPRAM HYDROBROMIDE [Concomitant]
  2. OXYCONTIN [Concomitant]
  3. HEPARIN [Concomitant]
  4. NEURONTIN (GABAPENTIN) [Concomitant]
  5. BUDESONIDE [Concomitant]
  6. REQUIP [Concomitant]
  7. SODIUM CHLORIDE 0.9% [Concomitant]
  8. PERFOROMIST (FORMOTEROL) [Concomitant]
  9. PRIVIGEN [Suspect]
     Indication: CHRONIC INFLAMMATORY DEMYELINATING POLYRADICULONEUROPATHY
     Dosage: (30 G, 30 GM DAILY FOR TWO DAYS EACH MONTH INTRAVENOUS (NOT OTHERWISE SPECIFIED)),
     Route: 042
     Dates: start: 20111226
  10. PRIVIGEN [Suspect]
     Indication: CHRONIC INFLAMMATORY DEMYELINATING POLYRADICULONEUROPATHY
     Dosage: (30 G, 30 GM DAILY FOR TWO DAYS EACH MONTH INTRAVENOUS (NOT OTHERWISE SPECIFIED)),
     Route: 042
     Dates: start: 20111004
  11. ALBUTEROL [Concomitant]
  12. VITAMIN B COMPLEX WITH VITAMIN C (VITAMIN B-COMPLEX WITH VITAMIN C) [Concomitant]
  13. ASPIRIN [Concomitant]
  14. PRIMIDONE [Concomitant]
  15. IPRATROPIUM BROMIDE [Concomitant]
  16. VITAMIN D [Concomitant]
  17. PREDNISONE (PREDNISONE) [Concomitant]
  18. PROTONIX [Concomitant]

REACTIONS (7)
  - NAUSEA [None]
  - PNEUMONIA [None]
  - VOMITING [None]
  - DIZZINESS [None]
  - OFF LABEL USE [None]
  - URINARY TRACT INFECTION [None]
  - INFUSION RELATED REACTION [None]
